FAERS Safety Report 18486929 (Version 1)
Quarter: 2020Q4

REPORT INFORMATION
  Report Type: Spontaneous
  Country: US (occurrence: US)
  Receive Date: 20201110
  Receipt Date: 20201110
  Transmission Date: 20210114
  Serious: Yes (Death, Other)
  Sender: FDA-Public Use
  Company Number: US-PURDUE-USA-2020-0176029

PATIENT
  Age: 43 Year
  Sex: Male

DRUGS (1)
  1. OXYCONTIN [Suspect]
     Active Substance: OXYCODONE HYDROCHLORIDE
     Indication: PRODUCT USED FOR UNKNOWN INDICATION
     Route: 048

REACTIONS (9)
  - Drug dependence [Unknown]
  - Drug abuse [Unknown]
  - Accidental overdose [Fatal]
  - Loss of consciousness [Unknown]
  - Emotional distress [Unknown]
  - Sleep disorder [Unknown]
  - Affective disorder [Unknown]
  - Pain [Unknown]
  - Overdose [Unknown]

NARRATIVE: CASE EVENT DATE: 20140323
